FAERS Safety Report 9247408 (Version 1)
Quarter: 2013Q2

REPORT INFORMATION
  Report Type: Spontaneous
  Country: US (occurrence: US)
  Receive Date: 20130423
  Receipt Date: 20130423
  Transmission Date: 20140414
  Serious: Yes (Other)
  Sender: FDA-Public Use
  Company Number: US-JNJFOC-20130408036

PATIENT
  Age: 9 Year
  Sex: Female

DRUGS (1)
  1. REMICADE [Suspect]
     Indication: PRODUCT USED FOR UNKNOWN INDICATION
     Route: 042
     Dates: end: 2013

REACTIONS (5)
  - Dyspnoea [Unknown]
  - Throat tightness [Unknown]
  - Infusion related reaction [Unknown]
  - Nausea [Unknown]
  - Cough [Unknown]
